FAERS Safety Report 18157538 (Version 1)
Quarter: 2020Q3

REPORT INFORMATION
  Report Type: Report from Study
  Country: BR (occurrence: BR)
  Receive Date: 20200817
  Receipt Date: 20200817
  Transmission Date: 20201103
  Serious: Yes (Other)
  Sender: FDA-Public Use
  Company Number: BR-UCBSA-2020031567

PATIENT
  Age: 21 Year
  Sex: Female
  Weight: 98 kg

DRUGS (5)
  1. DIPIRONA [Concomitant]
     Active Substance: METAMIZOLE
     Indication: COVID-19
     Dosage: 500 MILLIGRAM, UNK
     Route: 048
     Dates: start: 202007, end: 202007
  2. LORATADINA [Concomitant]
     Active Substance: LORATADINE
     Indication: COVID-19
     Dosage: 10 MILLIGRAM, UNK
     Route: 048
     Dates: start: 202007, end: 202007
  3. CERTOLIZUMAB PEGOL RA [Suspect]
     Active Substance: CERTOLIZUMAB PEGOL
     Indication: RHEUMATOID ARTHRITIS
     Dosage: 400 MILLIGRAM, EV 30 DAYS
     Route: 058
     Dates: start: 2019, end: 202006
  4. NOEX [Concomitant]
     Active Substance: BUDESONIDE
     Indication: COVID-19
     Dosage: UNK
     Route: 045
     Dates: start: 202007, end: 202007
  5. PREDNISONE. [Concomitant]
     Active Substance: PREDNISONE
     Indication: COVID-19
     Dosage: 20 MILLIGRAM, UNK
     Route: 048
     Dates: start: 202007, end: 202007

REACTIONS (4)
  - Diabetes mellitus [Not Recovered/Not Resolved]
  - Vitamin D decreased [Not Recovered/Not Resolved]
  - COVID-19 [Recovering/Resolving]
  - Weight increased [Unknown]

NARRATIVE: CASE EVENT DATE: 2019
